FAERS Safety Report 17179693 (Version 1)
Quarter: 2019Q4

REPORT INFORMATION
  Report Type: Spontaneous
  Country: SE (occurrence: SE)
  Receive Date: 20191220
  Receipt Date: 20191220
  Transmission Date: 20200122
  Serious: Yes (Hospitalization)
  Sender: FDA-Public Use
  Company Number: SE-009507513-1912SWE008347

PATIENT
  Age: 59 Year
  Sex: Male

DRUGS (2)
  1. MIRTAZAPINE. [Suspect]
     Active Substance: MIRTAZAPINE
     Dosage: 45 PIECES 15 MG EACH= 675 MG
     Dates: start: 20190509, end: 20190510
  2. PROPAVAN [Suspect]
     Active Substance: PROPIOMAZINE
     Dosage: 34 PIECES 25 MG EACH=850 MG
     Route: 048
     Dates: start: 20190509, end: 20190510

REACTIONS (4)
  - Akathisia [Unknown]
  - Intentional self-injury [Unknown]
  - Sinus tachycardia [Unknown]
  - Intentional overdose [Unknown]

NARRATIVE: CASE EVENT DATE: 20190509
